FAERS Safety Report 9994455 (Version 2)
Quarter: 2014Q2

REPORT INFORMATION
  Report Type: Spontaneous
  Country: US (occurrence: US)
  Receive Date: 20140311
  Receipt Date: 20140404
  Transmission Date: 20141212
  Serious: Yes (Hospitalization)
  Sender: FDA-Public Use
  Company Number: US-BIOGENIDEC-2014BI020308

PATIENT
  Age: 67 Year
  Sex: Female

DRUGS (19)
  1. TYSABRI [Suspect]
     Indication: MULTIPLE SCLEROSIS
     Route: 042
     Dates: start: 20071016
  2. ENDOCET [Concomitant]
     Route: 048
  3. VENTOLIN [Concomitant]
     Route: 055
  4. XANAX [Concomitant]
     Route: 048
  5. CIPRO [Concomitant]
     Route: 048
  6. CYANOCOBALAMIN [Concomitant]
     Route: 045
  7. PRISTIQ [Concomitant]
     Route: 048
  8. CYMBALTA [Concomitant]
     Route: 048
  9. LEXAPRO [Concomitant]
     Route: 048
  10. FENTANYL [Concomitant]
     Route: 061
  11. FLOVENT [Concomitant]
     Route: 055
  12. MOBIC [Concomitant]
     Route: 048
  13. OXYBUTYNIN [Concomitant]
     Route: 061
  14. SALAGEN [Concomitant]
     Route: 048
  15. LYRICA [Concomitant]
     Route: 048
  16. SEROQUEL [Concomitant]
     Route: 048
  17. IMITREX [Concomitant]
     Route: 048
  18. VALTREX [Concomitant]
     Route: 048
  19. ERGOCALCIFEROL [Concomitant]
     Route: 048

REACTIONS (1)
  - Urinary tract infection [Recovered/Resolved]
